FAERS Safety Report 6007230-6 (Version None)
Quarter: 2008Q4

REPORT INFORMATION
  Report Type: 
  Country: None (occurrence: None)
  Receive Date: 20081217
  Receipt Date: 20080211
  Transmission Date: 20090506
  Serious: No
  Sender: FDA-Public Use
  Company Number: US-ASTRAZENECA-2008UW02837

PATIENT
  Sex: Male

DRUGS (2)
  1. CRESTOR [Suspect]
     Indication: BLOOD CHOLESTEROL INCREASED
     Route: 048
     Dates: start: 20070101, end: 20070101
  2. CRESTOR [Suspect]
     Route: 048
     Dates: start: 20080101, end: 20080210

REACTIONS (4)
  - COUGH [None]
  - MYALGIA [None]
  - PAIN [None]
  - RHINORRHOEA [None]
